FAERS Safety Report 12615122 (Version 9)
Quarter: 2019Q4

REPORT INFORMATION
  Report Type: Report from Study
  Country: AU (occurrence: AU)
  Receive Date: 20160802
  Receipt Date: 20191121
  Transmission Date: 20200122
  Serious: Yes (Other)
  Sender: FDA-Public Use
  Company Number: AU-SA-2016SA007992

PATIENT
  Age: 59 Year
  Sex: Female
  Weight: 80 kg

DRUGS (2)
  1. IMIGLUCERASE [Suspect]
     Active Substance: IMIGLUCERASE
     Dosage: 2000 UNK, FORTNIGHTLYIN 102 MIL/ HOUR OVER 15 HOURS
     Route: 041
     Dates: start: 201103
  2. IMIGLUCERASE [Suspect]
     Active Substance: IMIGLUCERASE
     Indication: GAUCHER^S DISEASE TYPE I
     Dosage: 25.64 DF,QOW
     Route: 041
     Dates: start: 201103

REACTIONS (38)
  - Viral infection [Recovered/Resolved]
  - Joint effusion [Not Recovered/Not Resolved]
  - Poor venous access [Recovered/Resolved]
  - Haematochezia [Recovered/Resolved]
  - Arthralgia [Not Recovered/Not Resolved]
  - Limb injury [Recovered/Resolved]
  - Pain [Unknown]
  - Seasonal allergy [Recovered/Resolved]
  - Intraocular pressure increased [Recovered/Resolved]
  - Cough [Recovering/Resolving]
  - Dizziness [Recovered/Resolved]
  - Vomiting [Recovered/Resolved]
  - Dysuria [Recovered/Resolved]
  - Contusion [Not Recovered/Not Resolved]
  - Muscle spasms [Recovered/Resolved]
  - Pain in extremity [Recovered/Resolved]
  - Weight increased [Unknown]
  - Hiatus hernia [Recovered/Resolved]
  - Musculoskeletal chest pain [Recovered/Resolved]
  - Hypoaesthesia [Not Recovered/Not Resolved]
  - Lymphadenopathy [Recovered/Resolved]
  - Bronchitis [Recovering/Resolving]
  - Gastrooesophageal reflux disease [Recovered/Resolved]
  - Facial pain [Recovered/Resolved]
  - Foot fracture [Recovering/Resolving]
  - Nodule [Recovered/Resolved]
  - Dysphonia [Recovering/Resolving]
  - Lower respiratory tract infection [Recovered/Resolved]
  - Large intestine polyp [Recovered/Resolved]
  - Urinary tract infection [Recovered/Resolved]
  - Eye pruritus [Recovering/Resolving]
  - Nasal congestion [Recovering/Resolving]
  - Musculoskeletal pain [Recovered/Resolved]
  - Pain in extremity [Recovering/Resolving]
  - Arthropod sting [Recovered/Resolved]
  - Nasopharyngitis [Recovering/Resolving]
  - Product use issue [Unknown]
  - Diarrhoea [Recovered/Resolved]

NARRATIVE: CASE EVENT DATE: 20151204
